FAERS Safety Report 4280259-4 (Version None)
Quarter: 2004Q1

REPORT INFORMATION
  Report Type: 
  Country: None (occurrence: None)
  Receive Date: 20040126
  Receipt Date: 20040112
  Transmission Date: 20041129
  Serious: Yes (Hospitalization, Other)
  Sender: FDA-Public Use
  Company Number: 2004001953

PATIENT
  Age: 76 Year
  Sex: Male
  Weight: 104.3273 kg

DRUGS (3)
  1. VIAGRA [Suspect]
     Indication: ERECTILE DYSFUNCTION
     Dosage: ORAL
     Route: 048
  2. CE;ECOXIB (CELECOXIB) [Concomitant]
  3. ACETYLSALICYLIC ACID SRT [Concomitant]

REACTIONS (4)
  - BLOOD PRESSURE INCREASED [None]
  - CHEST PAIN [None]
  - GASTROINTESTINAL DISORDER [None]
  - HIATUS HERNIA [None]
